FAERS Safety Report 7329665-1 (Version None)
Quarter: 2011Q1

REPORT INFORMATION
  Report Type: 
  Country: None (occurrence: None)
  Receive Date: 20110223
  Receipt Date: 20110215
  Transmission Date: 20110831
  Serious: Yes (Hospitalization)
  Sender: FDA-Public Use
  Company Number: 1000018906

PATIENT
  Age: 60 Year
  Sex: Male

DRUGS (3)
  1. OMNIC (TAMSULOSIN HYDROCHLORIDE) (0.4 MILLIGRAM, CAPSULES) (TAMSULOSIN [Concomitant]
  2. FOSFOMYCIN (FOSFOMYCIN TROMETAMOL) (3 GRAM, GRANULATE) [Suspect]
     Indication: DYSURIA
     Dosage: 3 G (3 GM, 1 IN 1 D), ORAL
     Route: 048
     Dates: start: 20101105, end: 20101105
  3. SINVACOR (SIMVASTATIN) (1 DOSAFE FORMS, TABLETS) (SIMVASTATIN) [Concomitant]

REACTIONS (1)
  - PRESYNCOPE [None]
